FAERS Safety Report 25734858 (Version 1)
Quarter: 2025Q3

REPORT INFORMATION
  Report Type: Spontaneous
  Country: IN (occurrence: IN)
  Receive Date: 20250828
  Receipt Date: 20250828
  Transmission Date: 20251021
  Serious: Yes (Hospitalization, Other)
  Sender: CADILA
  Company Number: IN-CPL-005677

PATIENT
  Age: 48 Year
  Sex: Male

DRUGS (2)
  1. PREGABALIN [Suspect]
     Active Substance: PREGABALIN
     Dosage: 900 MG (THREE DIVIDED DOSES OF ?300 MG)
  2. PREGABALIN [Suspect]
     Active Substance: PREGABALIN
     Indication: Seizure

REACTIONS (14)
  - Drug dependence [Unknown]
  - Withdrawal syndrome [Unknown]
  - Irritability [Recovering/Resolving]
  - Headache [Recovering/Resolving]
  - Asthenia [Recovering/Resolving]
  - Dyspnoea [Recovering/Resolving]
  - Confusional state [Recovering/Resolving]
  - Hypoaesthesia [Recovering/Resolving]
  - Gastrointestinal disorder [Recovering/Resolving]
  - Weight increased [Recovering/Resolving]
  - Generalised oedema [Recovering/Resolving]
  - Wheezing [Recovering/Resolving]
  - Intentional overdose [Unknown]
  - Intentional product misuse [Unknown]
